FAERS Safety Report 13400507 (Version 1)
Quarter: 2017Q2

REPORT INFORMATION
  Report Type: Other
  Country: US (occurrence: US)
  Receive Date: 20170404
  Receipt Date: 20170404
  Transmission Date: 20170830
  Serious: No
  Sender: FDA-Public Use
  Company Number: US-BELCHER PHARMACEUTICALS, LLC-2016VTS00322

PATIENT
  Sex: Female
  Weight: 57.14 kg

DRUGS (1)
  1. HYOSCYAMINE SULFATE SL [Suspect]
     Active Substance: HYOSCYAMINE SULFATE
     Indication: GASTROINTESTINAL DISORDER
     Dosage: 1 TABLETS, AS NEEDED
     Route: 060

REACTIONS (1)
  - Tinnitus [Recovered/Resolved]
